FAERS Safety Report 9805563 (Version 1)
Quarter: 2014Q1

REPORT INFORMATION
  Report Type: Spontaneous
  Country: US (occurrence: None)
  Receive Date: 20140107
  Receipt Date: 20140107
  Transmission Date: 20141002
  Serious: Yes (Hospitalization, Other)
  Sender: FDA-Public Use
  Company Number: 2013P1022334

PATIENT
  Age: 83 Year
  Sex: Male

DRUGS (3)
  1. PREDNISONE [Suspect]
     Dates: start: 20061106
  2. BELATACEPT [Suspect]
     Route: 042
     Dates: start: 20061106, end: 20131028
  3. CELLCEPT [Suspect]
     Dates: start: 20061106

REACTIONS (7)
  - Ankle fracture [None]
  - Fall [None]
  - Ischaemic stroke [None]
  - Contusion [None]
  - Mental status changes [None]
  - Diffuse large B-cell lymphoma [None]
  - Lymphoproliferative disorder [None]
